FAERS Safety Report 4677384-2 (Version None)
Quarter: 2005Q2

REPORT INFORMATION
  Report Type: 
  Country: None (occurrence: None)
  Receive Date: 20050526
  Receipt Date: 20050505
  Transmission Date: 20051028
  Serious: No
  Sender: FDA-Public Use
  Company Number: 11048

PATIENT
  Age: 37 Year
  Sex: Male

DRUGS (4)
  1. METHOTREXATE [Suspect]
     Indication: CHRONIC MYELOID LEUKAEMIA
     Dosage: 12 MG IT
     Dates: start: 20050430, end: 20050430
  2. MORPHINE [Concomitant]
  3. PHENTANYL [Concomitant]
  4. MIDAZOLAM HCL [Concomitant]

REACTIONS (6)
  - HYPERTENSION [None]
  - MUSCLE SPASMS [None]
  - PAIN IN EXTREMITY [None]
  - PARAESTHESIA [None]
  - PERINEAL PAIN [None]
  - RESPIRATORY DISORDER [None]
